FAERS Safety Report 16408284 (Version 4)
Quarter: 2019Q3

REPORT INFORMATION
  Report Type: Spontaneous
  Country: US (occurrence: US)
  Receive Date: 20190610
  Receipt Date: 20190923
  Transmission Date: 20191004
  Serious: Yes (Death, Other)
  Sender: FDA-Public Use
  Company Number: US-ASTRAZENECA-2018SF26335

PATIENT
  Sex: Male

DRUGS (59)
  1. NEXIUM [Suspect]
     Active Substance: ESOMEPRAZOLE MAGNESIUM
     Indication: GASTROOESOPHAGEAL REFLUX DISEASE
     Route: 048
     Dates: start: 1999, end: 2016
  2. NEXIUM [Suspect]
     Active Substance: ESOMEPRAZOLE MAGNESIUM
     Indication: GASTROOESOPHAGEAL REFLUX DISEASE
     Dosage: UNKNOWN
     Route: 048
  3. WARFARIN [Concomitant]
     Active Substance: WARFARIN
  4. COLCHICINE. [Concomitant]
     Active Substance: COLCHICINE
  5. NEORAL [Concomitant]
     Active Substance: CYCLOSPORINE
  6. CARTIA [Concomitant]
  7. K DUR [Concomitant]
  8. ALLOPURINOL. [Concomitant]
     Active Substance: ALLOPURINOL
  9. AMOXICILLINE [Concomitant]
     Active Substance: AMOXICILLIN
  10. FUROSEMIDE. [Concomitant]
     Active Substance: FUROSEMIDE
  11. NEXIUM [Suspect]
     Active Substance: ESOMEPRAZOLE MAGNESIUM
     Indication: GASTROOESOPHAGEAL REFLUX DISEASE
     Dosage: UNKNOWN
     Route: 048
  12. POTASSIUM CHLORIDE. [Concomitant]
     Active Substance: POTASSIUM CHLORIDE
  13. FLOMAX [Concomitant]
     Active Substance: TAMSULOSIN HYDROCHLORIDE
  14. PREDNISONE. [Concomitant]
     Active Substance: PREDNISONE
  15. COUMADIN [Concomitant]
     Active Substance: WARFARIN SODIUM
  16. NIASPAN [Concomitant]
     Active Substance: NIACIN
  17. AMITIZA [Concomitant]
     Active Substance: LUBIPROSTONE
  18. ZOLPIDEM [Concomitant]
     Active Substance: ZOLPIDEM TARTRATE
  19. PRILOSEC [Suspect]
     Active Substance: OMEPRAZOLE MAGNESIUM
     Indication: GASTROOESOPHAGEAL REFLUX DISEASE
     Route: 048
     Dates: start: 1999, end: 2016
  20. DELTASONE [Concomitant]
     Active Substance: PREDNISONE
  21. CIALIS [Concomitant]
     Active Substance: TADALAFIL
  22. TRAMADOL. [Concomitant]
     Active Substance: TRAMADOL
  23. ALLOPURINOL. [Concomitant]
     Active Substance: ALLOPURINOL
     Indication: GOUT
     Route: 065
     Dates: start: 2004, end: 2016
  24. TYLENOL [Concomitant]
     Active Substance: ACETAMINOPHEN
     Indication: PYREXIA
     Route: 065
  25. RANITIDINE. [Concomitant]
     Active Substance: RANITIDINE
     Dates: start: 2000, end: 2004
  26. ALLOPURINOL. [Concomitant]
     Active Substance: ALLOPURINOL
  27. CELLCEPT [Concomitant]
     Active Substance: MYCOPHENOLATE MOFETIL\MYCOPHENOLATE MOFETIL HYDROCHLORIDE
  28. LOVENOX [Concomitant]
     Active Substance: ENOXAPARIN SODIUM
  29. LEVITRA [Concomitant]
     Active Substance: VARDENAFIL HYDROCHLORIDE
  30. MUSE [Concomitant]
     Active Substance: ALPROSTADIL
  31. PREDNISONE. [Concomitant]
     Active Substance: PREDNISONE
     Route: 065
     Dates: start: 2006, end: 2015
  32. COLCHICINE. [Concomitant]
     Active Substance: COLCHICINE
  33. HYDROCODONE BITARTRATE AND ACETAMINOPHEN [Concomitant]
     Active Substance: ACETAMINOPHEN\HYDROCODONE BITARTRATE
  34. KLOR-CON [Concomitant]
     Active Substance: POTASSIUM CHLORIDE
  35. WARFARIN SODIUM. [Concomitant]
     Active Substance: WARFARIN SODIUM
  36. NEXIUM [Suspect]
     Active Substance: ESOMEPRAZOLE MAGNESIUM
     Indication: GASTROOESOPHAGEAL REFLUX DISEASE
     Dosage: 40.0MG UNKNOWN
     Route: 048
     Dates: start: 2005, end: 2015
  37. PRILOSEC [Suspect]
     Active Substance: OMEPRAZOLE MAGNESIUM
     Indication: GASTROOESOPHAGEAL REFLUX DISEASE
     Dosage: GENERIC20.0MG UNKNOWN
     Route: 048
     Dates: start: 2004
  38. VIAGRA [Concomitant]
     Active Substance: SILDENAFIL CITRATE
     Indication: ERECTILE DYSFUNCTION
     Route: 065
     Dates: start: 2005, end: 2008
  39. TUMS [Concomitant]
     Active Substance: CALCIUM CARBONATE
  40. METOLAZONE. [Concomitant]
     Active Substance: METOLAZONE
  41. RANITIDINE. [Concomitant]
     Active Substance: RANITIDINE
  42. VALCYTE [Concomitant]
     Active Substance: VALGANCICLOVIR HYDROCHLORIDE
  43. METHIMAZOLE. [Concomitant]
     Active Substance: METHIMAZOLE
  44. BUMETANIDE. [Concomitant]
     Active Substance: BUMETANIDE
  45. COMBIVENT [Concomitant]
     Active Substance: ALBUTEROL SULFATE\IPRATROPIUM BROMIDE
  46. TORSEMIDE. [Concomitant]
     Active Substance: TORSEMIDE
  47. NEXIUM [Suspect]
     Active Substance: ESOMEPRAZOLE MAGNESIUM
     Indication: GASTROOESOPHAGEAL REFLUX DISEASE
     Dosage: GENERIC UNKNOWN
     Route: 065
  48. PRILOSEC [Suspect]
     Active Substance: OMEPRAZOLE MAGNESIUM
     Indication: GASTROOESOPHAGEAL REFLUX DISEASE
     Dosage: 30.0MG UNKNOWN
     Route: 048
     Dates: start: 1999, end: 2004
  49. FUROSEMIDE. [Concomitant]
     Active Substance: FUROSEMIDE
     Indication: CARDIAC FAILURE
     Route: 065
     Dates: start: 2005, end: 2012
  50. WARFARIN [Concomitant]
     Active Substance: WARFARIN
  51. AXIRON [Concomitant]
     Active Substance: TESTOSTERONE
  52. PRILOSEC [Suspect]
     Active Substance: OMEPRAZOLE MAGNESIUM
     Indication: GASTROOESOPHAGEAL REFLUX DISEASE
     Dosage: UNKNOWN
     Route: 048
  53. LIPITOR [Concomitant]
     Active Substance: ATORVASTATIN CALCIUM
     Indication: BLOOD CHOLESTEROL
     Route: 065
     Dates: start: 2005, end: 2012
  54. ATORVASTATIN [Concomitant]
     Active Substance: ATORVASTATIN
  55. POTASSIUM CHLORIDE. [Concomitant]
     Active Substance: POTASSIUM CHLORIDE
  56. WARFARIN [Concomitant]
     Active Substance: WARFARIN
  57. ELIDEL [Concomitant]
     Active Substance: PIMECROLIMUS
  58. SULFAMETHOXAZOLE [Concomitant]
     Active Substance: SULFAMETHOXAZOLE
  59. OXYCONTIN [Concomitant]
     Active Substance: OXYCODONE HYDROCHLORIDE

REACTIONS (4)
  - Chronic kidney disease [Recovered/Resolved]
  - Cardiac failure congestive [Fatal]
  - End stage renal disease [Recovered/Resolved]
  - Renal failure [Fatal]
